FAERS Safety Report 17604988 (Version 1)
Quarter: 2020Q1

REPORT INFORMATION
  Report Type: Spontaneous
  Country: US (occurrence: US)
  Receive Date: 20200331
  Receipt Date: 20200331
  Transmission Date: 20200409
  Serious: Yes (Life-Threatening)
  Sender: FDA-Public Use
  Company Number: None

PATIENT
  Age: 69 Year
  Sex: Female
  Weight: 74.84 kg

DRUGS (14)
  1. FAMOTIDINE. [Concomitant]
     Active Substance: FAMOTIDINE
  2. CLOPIDOGREL [Concomitant]
     Active Substance: CLOPIDOGREL BISULFATE
  3. SYNTHROID [Concomitant]
     Active Substance: LEVOTHYROXINE SODIUM
  4. CELECOXIB 200MG CAPSULE [Concomitant]
     Active Substance: CELECOXIB
     Dates: start: 20200103
  5. HYDROCODONE/APAP 5/325 [Concomitant]
     Active Substance: ACETAMINOPHEN\HYDROCODONE
     Dates: start: 20170307
  6. NEXIUM [Concomitant]
     Active Substance: ESOMEPRAZOLE MAGNESIUM
  7. RESTASIS 0.05% EYE DROPS [Concomitant]
  8. PREDNISONE 5MG [Concomitant]
     Active Substance: PREDNISONE
     Dates: start: 20200304, end: 20200310
  9. CALCIUM CARBONATE TABLETS [Concomitant]
  10. ATORVASTATIN [Concomitant]
     Active Substance: ATORVASTATIN
  11. ASPIRIN. [Concomitant]
     Active Substance: ASPIRIN
  12. DENOVIR 1% TOPICAL CREAM [Concomitant]
     Dates: start: 20170207
  13. XELJANZ [Suspect]
     Active Substance: TOFACITINIB CITRATE
     Indication: RHEUMATOID ARTHRITIS
     Route: 048
     Dates: start: 20191112, end: 20200326
  14. PROLIA [Concomitant]
     Active Substance: DENOSUMAB

REACTIONS (4)
  - Cerebral venous thrombosis [None]
  - Nausea [None]
  - Vertigo [None]
  - Influenza virus test positive [None]

NARRATIVE: CASE EVENT DATE: 20200320
